FAERS Safety Report 6029292-2 (Version None)
Quarter: 2009Q1

REPORT INFORMATION
  Report Type: 
  Country: None (occurrence: None)
  Receive Date: 20090106
  Receipt Date: 20081217
  Transmission Date: 20090719
  Serious: No
  Sender: FDA-Public Use
  Company Number: US-B.I. PHARMACEUTICALS,INC./RIDGEFIELD-2008-BP-15992BP

PATIENT
  Age: 83 Year
  Sex: Female

DRUGS (5)
  1. SPIRIVA [Suspect]
     Indication: CHRONIC OBSTRUCTIVE PULMONARY DISEASE
     Dosage: 18MCG
     Route: 055
     Dates: start: 20080901, end: 20081028
  2. SPIRIVA [Suspect]
     Indication: EMPHYSEMA
  3. LASIX [Concomitant]
     Indication: DIURETIC THERAPY
     Dosage: 20MG
     Dates: start: 20080801
  4. ASPIRIN [Concomitant]
     Dosage: 81MG
  5. ADVAIR DISKUS 250/50 [Concomitant]

REACTIONS (1)
  - VISION BLURRED [None]
